FAERS Safety Report 5456424-7 (Version None)
Quarter: 2007Q3

REPORT INFORMATION
  Report Type: 
  Country: None (occurrence: None)
  Receive Date: 20070914
  Receipt Date: 20070914
  Transmission Date: 20080115
  Serious: Yes (Life-Threatening, Hospitalization)
  Sender: FDA-Public Use
  Company Number: None

PATIENT
  Age: 25 Year
  Sex: Female
  Weight: 58.9676 kg

DRUGS (1)
  1. LOW-OGESTREL-21 [Suspect]
     Indication: ORAL CONTRACEPTION
     Dosage: 0.3MG NORGESTREL/30MCG 1 TABLET PER DAY PO
     Route: 048
     Dates: start: 20020601, end: 20050528

REACTIONS (6)
  - APHASIA [None]
  - BLOOD PRESSURE INCREASED [None]
  - CONFUSIONAL STATE [None]
  - HYPOAESTHESIA [None]
  - LOSS OF CONSCIOUSNESS [None]
  - MOBILITY DECREASED [None]
